FAERS Safety Report 17263084 (Version 1)
Quarter: 2020Q1

REPORT INFORMATION
  Report Type: Spontaneous
  Country: NP (occurrence: NP)
  Receive Date: 20200110
  Receipt Date: 20200110
  Transmission Date: 20200409
  Serious: Yes (Hospitalization, Disabling)
  Sender: FDA-Public Use
  Company Number: None

PATIENT
  Age: 74 Year
  Sex: Female
  Weight: 60 kg

DRUGS (3)
  1. HIGH BLOOD PRESSURE MEDICATIONS [Concomitant]
  2. CHLORZOXAZONE. [Suspect]
     Active Substance: CHLORZOXAZONE
     Indication: MUSCLE RELAXANT THERAPY
  3. ANTI DIABETIC MEDICATIONS [Concomitant]

REACTIONS (11)
  - Blood glucose increased [None]
  - Insomnia [None]
  - Movement disorder [None]
  - Speech disorder [None]
  - Feeling cold [None]
  - Depressed level of consciousness [None]
  - Gait disturbance [None]
  - Headache [None]
  - Dysphagia [None]
  - Musculoskeletal discomfort [None]
  - Parosmia [None]

NARRATIVE: CASE EVENT DATE: 20200108
